FAERS Safety Report 18238789 (Version 22)
Quarter: 2025Q1

REPORT INFORMATION
  Report Type: Report from Study
  Country: CA (occurrence: CA)
  Receive Date: 20200907
  Receipt Date: 20250324
  Transmission Date: 20250409
  Serious: Yes (Hospitalization, Other)
  Sender: TAKEDA
  Company Number: CA-TAKEDA-2020TUS037615

PATIENT
  Sex: Male

DRUGS (32)
  1. VEDOLIZUMAB [Suspect]
     Active Substance: VEDOLIZUMAB
     Indication: Crohn^s disease
  2. VEDOLIZUMAB [Suspect]
     Active Substance: VEDOLIZUMAB
  3. VEDOLIZUMAB [Suspect]
     Active Substance: VEDOLIZUMAB
  4. VEDOLIZUMAB [Suspect]
     Active Substance: VEDOLIZUMAB
  5. VEDOLIZUMAB [Suspect]
     Active Substance: VEDOLIZUMAB
  6. VEDOLIZUMAB [Suspect]
     Active Substance: VEDOLIZUMAB
  7. VEDOLIZUMAB [Suspect]
     Active Substance: VEDOLIZUMAB
  8. VEDOLIZUMAB [Suspect]
     Active Substance: VEDOLIZUMAB
  9. VEDOLIZUMAB [Suspect]
     Active Substance: VEDOLIZUMAB
  10. VEDOLIZUMAB [Suspect]
     Active Substance: VEDOLIZUMAB
  11. VEDOLIZUMAB [Suspect]
     Active Substance: VEDOLIZUMAB
  12. VEDOLIZUMAB [Suspect]
     Active Substance: VEDOLIZUMAB
  13. VEDOLIZUMAB [Suspect]
     Active Substance: VEDOLIZUMAB
  14. VEDOLIZUMAB [Suspect]
     Active Substance: VEDOLIZUMAB
  15. VEDOLIZUMAB [Suspect]
     Active Substance: VEDOLIZUMAB
  16. PANTOPRAZOLE SODIUM [Suspect]
     Active Substance: PANTOPRAZOLE SODIUM
     Indication: Product used for unknown indication
  17. GOSERELIN [Suspect]
     Active Substance: GOSERELIN
     Indication: Prostate cancer metastatic
  18. GOSERELIN [Suspect]
     Active Substance: GOSERELIN
     Indication: Bone cancer
  19. CASODEX [Suspect]
     Active Substance: BICALUTAMIDE
     Indication: Prostate cancer metastatic
  20. CASODEX [Suspect]
     Active Substance: BICALUTAMIDE
     Indication: Bone cancer
  21. METFORMIN [Concomitant]
     Active Substance: METFORMIN HYDROCHLORIDE
  22. PINAVERIUM BROMIDE [Concomitant]
     Active Substance: PINAVERIUM BROMIDE
  23. ASPIRIN [Concomitant]
     Active Substance: ASPIRIN
  24. SENOKOT [Concomitant]
     Active Substance: SENNOSIDES
  25. VITAMIN D [Concomitant]
     Active Substance: VITAMIN D NOS
  26. CALCIUM [Concomitant]
     Active Substance: CALCIUM
  27. VITAMIN K [Concomitant]
     Active Substance: PHYTONADIONE
  28. FINASTERIDE [Concomitant]
     Active Substance: FINASTERIDE
  29. TADALAFIL [Concomitant]
     Active Substance: TADALAFIL
  30. VALSARTAN [Concomitant]
     Active Substance: VALSARTAN
  31. EDOXABAN [Concomitant]
     Active Substance: EDOXABAN
  32. JARDIANCE [Concomitant]
     Active Substance: EMPAGLIFLOZIN

REACTIONS (23)
  - Diarrhoea [Unknown]
  - Metastases to bone [Unknown]
  - Small intestinal obstruction [Recovered/Resolved]
  - Cardiac disorder [Unknown]
  - Prostate cancer metastatic [Unknown]
  - Eczema [Unknown]
  - Nausea [Not Recovered/Not Resolved]
  - Abnormal faeces [Not Recovered/Not Resolved]
  - Pain [Unknown]
  - Faeces hard [Unknown]
  - Abdominal pain lower [Unknown]
  - Faeces soft [Unknown]
  - Eructation [Unknown]
  - Abdominal pain upper [Unknown]
  - Malaise [Unknown]
  - Abdominal pain [Recovering/Resolving]
  - Decreased appetite [Unknown]
  - Abdominal distension [Unknown]
  - Constipation [Recovering/Resolving]
  - Flatulence [Unknown]
  - Intestinal mass [Not Recovered/Not Resolved]
  - Epistaxis [Recovered/Resolved]
  - Blood pressure increased [Recovered/Resolved]
